FAERS Safety Report 4299516-0 (Version None)
Quarter: 2004Q1

REPORT INFORMATION
  Report Type: 
  Country: None (occurrence: None)
  Receive Date: 20040217
  Receipt Date: 20040203
  Transmission Date: 20041129
  Serious: Yes (Other)
  Sender: FDA-Public Use
  Company Number: 2004007201

PATIENT
  Age: 58 Year
  Sex: Male

DRUGS (4)
  1. DOFETILIDE (DOFETILIDE) [Suspect]
     Indication: ATRIAL FIBRILLATION
     Dosage: 1000 MCG BID
     Dates: start: 20040101
  2. LISINOPRIL [Concomitant]
  3. DIGOXIN [Concomitant]
  4. CARVEDILOL [Concomitant]

REACTIONS (8)
  - ATRIAL FIBRILLATION [None]
  - BRADYCARDIA [None]
  - CARDIAC FAILURE [None]
  - CARDIOMYOPATHY [None]
  - EJECTION FRACTION DECREASED [None]
  - ELECTROCARDIOGRAM QT CORRECTED INTERVAL PROLONGED [None]
  - HYPERTHYROIDISM [None]
  - SUPRAVENTRICULAR EXTRASYSTOLES [None]
